FAERS Safety Report 4869210-3 (Version None)
Quarter: 2005Q4

REPORT INFORMATION
  Report Type: 
  Country: None (occurrence: None)
  Receive Date: 20051230
  Receipt Date: 20051117
  Transmission Date: 20060501
  Serious: Yes (Other)
  Sender: FDA-Public Use
  Company Number: PHBS2005JP16979

PATIENT
  Age: 63 Year
  Sex: Male
  Weight: 75 kg

DRUGS (13)
  1. ZYLORIC [Concomitant]
     Indication: HYPERURICAEMIA
     Dosage: 100 MG, UNK
     Route: 048
     Dates: start: 20050406
  2. DIOVAN [Suspect]
     Dosage: 160 MG, QD
     Route: 048
     Dates: start: 20051027, end: 20051028
  3. DIOVAN [Suspect]
     Dosage: 80 MG, QD
     Route: 048
  4. DIOVAN [Suspect]
     Dosage: 20 MG, UNK
     Dates: start: 20041110, end: 20051206
  5. DIOVAN [Suspect]
     Dosage: 40 MG, QD
     Route: 048
     Dates: start: 20041207, end: 20050112
  6. DIOVAN [Suspect]
     Dosage: 80 MG, QD
     Route: 048
     Dates: start: 20050113, end: 20051026
  7. INHIBACE [Concomitant]
     Indication: HYPERTENSION
     Dosage: 1 MG, UNK
     Dates: start: 20020109
  8. BUFFERIN [Concomitant]
     Indication: CEREBRAL INFARCTION
     Dosage: 81 MG, UNK
     Route: 048
     Dates: start: 20020109
  9. CARDENALIN [Concomitant]
     Indication: HYPERTENSION
     Dosage: 1 MG, UNK
     Dates: start: 20050209, end: 20050615
  10. CARDENALIN [Concomitant]
     Dosage: 2 MG, UNK
     Route: 048
     Dates: start: 20050615
  11. ADALAT [Concomitant]
     Indication: HYPERTENSION
     Dosage: 40 MG, UNK
     Route: 048
     Dates: start: 20020109
  12. DEPAS [Concomitant]
     Indication: INSOMNIA
     Dosage: 0.5 MG, UNK
     Route: 048
     Dates: start: 20020109
  13. SELBEX [Concomitant]
     Indication: GASTRITIS
     Dosage: 1.5 G, UNK
     Route: 048
     Dates: start: 20020110

REACTIONS (27)
  - ALANINE AMINOTRANSFERASE INCREASED [None]
  - AORTIC ANEURYSM [None]
  - ASPARTATE AMINOTRANSFERASE INCREASED [None]
  - ASTHENIA [None]
  - BLOOD CREATINE PHOSPHOKINASE INCREASED [None]
  - BLOOD CREATININE INCREASED [None]
  - BLOOD LACTATE DEHYDROGENASE INCREASED [None]
  - BLOOD UREA INCREASED [None]
  - C-REACTIVE PROTEIN INCREASED [None]
  - CHILLS [None]
  - DECREASED APPETITE [None]
  - DEHYDRATION [None]
  - DIZZINESS [None]
  - DRUG INEFFECTIVE [None]
  - GAMMA-GLUTAMYLTRANSFERASE INCREASED [None]
  - HAEMOGLOBIN DECREASED [None]
  - HEPATIC FUNCTION ABNORMAL [None]
  - INFECTION [None]
  - OCCULT BLOOD POSITIVE [None]
  - PALPITATIONS [None]
  - PLATELET COUNT DECREASED [None]
  - POLLAKIURIA [None]
  - PROTEIN URINE PRESENT [None]
  - RED BLOOD CELL COUNT DECREASED [None]
  - RENAL IMPAIRMENT [None]
  - URINARY INCONTINENCE [None]
  - WHITE BLOOD CELL COUNT INCREASED [None]
